FAERS Safety Report 4914058-4 (Version None)
Quarter: 2006Q1

REPORT INFORMATION
  Report Type: 
  Country: None (occurrence: None)
  Receive Date: 20060216
  Receipt Date: 20060208
  Transmission Date: 20060701
  Serious: Yes (Hospitalization)
  Sender: FDA-Public Use
  Company Number: JP-SANOFI-SYNTHELABO-A01200601117

PATIENT
  Age: 43 Year
  Sex: Female

DRUGS (4)
  1. OXALIPLATIN [Suspect]
     Route: 042
     Dates: start: 20060206, end: 20060206
  2. FLUOROURACIL [Suspect]
     Route: 042
     Dates: start: 20060206, end: 20060206
  3. FLUOROURACIL [Suspect]
     Route: 042
     Dates: start: 20060206, end: 20060206
  4. ISOVORIN [Concomitant]
     Route: 042
     Dates: start: 20060206, end: 20060206

REACTIONS (1)
  - TOXIC SKIN ERUPTION [None]
